FAERS Safety Report 6304881-6 (Version None)
Quarter: 2009Q3

REPORT INFORMATION
  Report Type: 
  Country: None (occurrence: None)
  Receive Date: 20090811
  Receipt Date: 20090810
  Transmission Date: 20100115
  Serious: Yes (Hospitalization)
  Sender: FDA-Public Use
  Company Number: US-GENENTECH-260867

PATIENT
  Sex: Male
  Weight: 104.31 kg

DRUGS (2)
  1. BEVACIZUMAB [Suspect]
     Indication: NON-SMALL CELL LUNG CANCER
     Dosage: 15 MG/KG, Q3W
     Route: 042
     Dates: start: 20080204
  2. NEUPOGEN [Suspect]
     Indication: PROPHYLAXIS
     Dosage: 6 MG, Q3W
     Route: 058
     Dates: start: 20080204

REACTIONS (2)
  - LEUKOCYTOSIS [None]
  - PYREXIA [None]
